FAERS Safety Report 15744449 (Version 1)
Quarter: 2018Q4

REPORT INFORMATION
  Report Type: Report from Study
  Country: US (occurrence: US)
  Receive Date: 20181220
  Receipt Date: 20181220
  Transmission Date: 20190205
  Serious: Yes (Other)
  Sender: FDA-Public Use
  Company Number: US-EMD SERONO-9055809

PATIENT
  Sex: Female

DRUGS (3)
  1. AIRBORNE [Suspect]
     Active Substance: HERBALS\MINERALS\VITAMINS
     Indication: PROPHYLAXIS
  2. REBIF [Suspect]
     Active Substance: INTERFERON BETA-1A
     Indication: PRODUCT USED FOR UNKNOWN INDICATION
     Route: 058
     Dates: start: 20180112, end: 20181203
  3. VITAMIN C [Suspect]
     Active Substance: ASCORBIC ACID
     Indication: PROPHYLAXIS

REACTIONS (5)
  - White blood cell count decreased [Recovering/Resolving]
  - Immunology test abnormal [Unknown]
  - Urethral cyst [Unknown]
  - Neurogenic bladder [Unknown]
  - Oropharyngeal pain [Unknown]

NARRATIVE: CASE EVENT DATE: 2018
